FAERS Safety Report 7001937-X (Version None)
Quarter: 2010Q3

REPORT INFORMATION
  Report Type: 
  Country: None (occurrence: None)
  Receive Date: 20100920
  Receipt Date: 20100910
  Transmission Date: 20110219
  Serious: Yes (Other)
  Sender: FDA-Public Use
  Company Number: A0837127A

PATIENT
  Age: 46 Year
  Sex: Female

DRUGS (1)
  1. ROSIGLITAZONE [Suspect]
     Dosage: 8MG PER DAY
     Route: 048
     Dates: start: 19970101, end: 20081101

REACTIONS (3)
  - CARDIAC FAILURE CONGESTIVE [None]
  - MULTIPLE FRACTURES [None]
  - PULMONARY ARTERIAL HYPERTENSION [None]
